FAERS Safety Report 4773212-5 (Version None)
Quarter: 2005Q3

REPORT INFORMATION
  Report Type: 
  Country: None (occurrence: None)
  Receive Date: 20050919
  Receipt Date: 20050909
  Transmission Date: 20060218
  Serious: Yes (Death, Life-Threatening, Other)
  Sender: FDA-Public Use
  Company Number: SI-MERCK-0509HUN00008

PATIENT
  Age: 58 Year
  Sex: Male
  Weight: 80 kg

DRUGS (3)
  1. CANCIDAS [Suspect]
     Indication: SEPSIS
     Route: 041
     Dates: start: 20050401, end: 20050404
  2. AMIKACIN [Concomitant]
     Indication: SEPSIS
     Route: 041
     Dates: start: 20050325, end: 20050409
  3. VANCOMYCIN [Concomitant]
     Indication: SEPSIS
     Route: 041
     Dates: start: 20050325, end: 20050411

REACTIONS (4)
  - BLOOD LACTATE DEHYDROGENASE INCREASED [None]
  - HEPATOCELLULAR DAMAGE [None]
  - SEPTIC SHOCK [None]
  - TRANSAMINASES INCREASED [None]
